FAERS Safety Report 4944439-4 (Version None)
Quarter: 2006Q1

REPORT INFORMATION
  Report Type: 
  Country: None (occurrence: None)
  Receive Date: 20060315
  Receipt Date: 20060309
  Transmission Date: 20060701
  Serious: Yes (Hospitalization, Other)
  Sender: FDA-Public Use
  Company Number: US-MERCK-0603USA01629

PATIENT
  Age: 45 Year
  Sex: Female
  Weight: 91 kg

DRUGS (8)
  1. VIOXX [Suspect]
     Indication: BACK PAIN
     Route: 048
     Dates: start: 19991117, end: 20010101
  2. VIOXX [Suspect]
     Route: 048
     Dates: start: 20010101, end: 20010101
  3. VIOXX [Suspect]
     Route: 048
     Dates: start: 20010101, end: 20010101
  4. VIOXX [Suspect]
     Route: 048
     Dates: start: 20020101, end: 20021129
  5. VIOXX [Suspect]
     Indication: SHOULDER PAIN
     Route: 048
     Dates: start: 19991117, end: 20010101
  6. VIOXX [Suspect]
     Route: 048
     Dates: start: 20010101, end: 20010101
  7. VIOXX [Suspect]
     Route: 048
     Dates: start: 20010101, end: 20010101
  8. VIOXX [Suspect]
     Route: 048
     Dates: start: 20020101, end: 20021129

REACTIONS (4)
  - CARDIAC DISORDER [None]
  - DEPRESSION [None]
  - MYOCARDIAL INFARCTION [None]
  - OVERDOSE [None]
